FAERS Safety Report 21515250 (Version 3)
Quarter: 2022Q4

REPORT INFORMATION
  Report Type: Spontaneous
  Country: US (occurrence: US)
  Receive Date: 20221027
  Receipt Date: 20221122
  Transmission Date: 20230113
  Serious: No
  Sender: FDA-Public Use
  Company Number: US-PFIZER INC-PV202200090148

PATIENT
  Age: 36 Year
  Sex: Female

DRUGS (1)
  1. IBRANCE [Suspect]
     Active Substance: PALBOCICLIB
     Dosage: 125 MG
     Dates: start: 20220927, end: 20221115

REACTIONS (7)
  - Product dose omission issue [Unknown]
  - Decreased appetite [Unknown]
  - Headache [Unknown]
  - Stomatitis [Unknown]
  - Fatigue [Unknown]
  - Nausea [Recovered/Resolved]
  - Middle insomnia [Unknown]

NARRATIVE: CASE EVENT DATE: 20221001
